FAERS Safety Report 10040527 (Version 1)
Quarter: 2014Q1

REPORT INFORMATION
  Report Type: Report from Study
  Country: CA (occurrence: CA)
  Receive Date: 20140327
  Receipt Date: 20140327
  Transmission Date: 20141002
  Serious: Yes (Hospitalization)
  Sender: FDA-Public Use
  Company Number: CA-BRISTOL-MYERS SQUIBB COMPANY-20553350

PATIENT
  Age: 76 Year
  Sex: Female

DRUGS (4)
  1. ORENCIA [Suspect]
     Indication: RHEUMATOID ARTHRITIS
     Dosage: 1DF=750 UNIT NOS
     Dates: start: 20111212, end: 201307
  2. ARAVA [Concomitant]
  3. DIOVAN [Concomitant]
  4. PREDNISONE [Concomitant]

REACTIONS (3)
  - Aphagia [Unknown]
  - Malaise [Unknown]
  - Weight decreased [Unknown]
